FAERS Safety Report 10563502 (Version 1)
Quarter: 2014Q4

REPORT INFORMATION
  Report Type: Spontaneous
  Country: US (occurrence: None)
  Receive Date: 20141103
  Receipt Date: 20141103
  Transmission Date: 20150529
  Serious: Yes (Hospitalization)
  Sender: FDA-Public Use
  Company Number: None

PATIENT
  Age: 7 Month
  Sex: Male

DRUGS (2)
  1. CIPRO [Suspect]
     Active Substance: CIPROFLOXACIN HYDROCHLORIDE
     Indication: PROPHYLAXIS
     Route: 048
     Dates: start: 20141008, end: 20141015
  2. CIPRO [Suspect]
     Active Substance: CIPROFLOXACIN HYDROCHLORIDE
     Indication: URINARY TRACT INFECTION
     Route: 048
     Dates: start: 20141008, end: 20141015

REACTIONS (6)
  - Hypoaesthesia [None]
  - Cerebrovascular accident [None]
  - Paraesthesia [None]
  - Ageusia [None]
  - Dysgeusia [None]
  - Hypoaesthesia oral [None]

NARRATIVE: CASE EVENT DATE: 20141031
